FAERS Safety Report 23495688 (Version 2)
Quarter: 2024Q1

REPORT INFORMATION
  Report Type: Spontaneous
  Country: IT (occurrence: IT)
  Receive Date: 20240207
  Receipt Date: 20240301
  Transmission Date: 20240410
  Serious: Yes (Hospitalization, Other)
  Sender: FDA-Public Use
  Company Number: None

PATIENT
  Age: 21 Year
  Sex: Female
  Weight: 42 kg

DRUGS (1)
  1. OFATUMUMAB [Suspect]
     Active Substance: OFATUMUMAB
     Indication: Relapsing-remitting multiple sclerosis
     Dosage: UNK (1 FIALA SOMMINISTRAZIONE S.C)
     Route: 058
     Dates: start: 20240125, end: 20240125

REACTIONS (21)
  - Dyspnoea [Recovered/Resolved]
  - Anaphylactoid reaction [Recovering/Resolving]
  - Asthma [Recovering/Resolving]
  - Wheezing [Recovering/Resolving]
  - Tongue oedema [Recovering/Resolving]
  - Tongue spasm [Recovering/Resolving]
  - Swollen tongue [Recovering/Resolving]
  - Respiratory distress [Recovering/Resolving]
  - Respiratory failure [Recovering/Resolving]
  - Erythema [Recovering/Resolving]
  - Flushing [Recovering/Resolving]
  - Asthenia [Recovering/Resolving]
  - Rash [Recovering/Resolving]
  - Pyrexia [Recovering/Resolving]
  - Urticaria [Recovering/Resolving]
  - Chest discomfort [Recovering/Resolving]
  - Bronchospasm [Recovering/Resolving]
  - Pruritus [Recovering/Resolving]
  - Arthralgia [Recovering/Resolving]
  - Myalgia [Recovering/Resolving]
  - Lymphadenopathy [Recovering/Resolving]

NARRATIVE: CASE EVENT DATE: 20240125
